FAERS Safety Report 6240058-0 (Version None)
Quarter: 2009Q2

REPORT INFORMATION
  Report Type: 
  Country: None (occurrence: None)
  Receive Date: 20090623
  Receipt Date: 20090615
  Transmission Date: 20091009
  Serious: Yes (Hospitalization)
  Sender: FDA-Public Use
  Company Number: US-ROCHE-638536

PATIENT
  Sex: Female
  Weight: 72.6 kg

DRUGS (4)
  1. BONIVA [Suspect]
     Indication: OSTEOPOROSIS
     Route: 042
     Dates: start: 20080101
  2. OXYCONTIN [Concomitant]
     Indication: PAIN
     Dosage: DRUG: OXYCOTIN
     Route: 048
     Dates: start: 20090601
  3. VIT D [Concomitant]
     Indication: OSTEOPOROSIS
     Dosage: DAILY DOSAGE
     Route: 048
  4. CALCIUM [Concomitant]
     Indication: OSTEOPOROSIS
     Dosage: DAILY DOSAGE
     Route: 048

REACTIONS (4)
  - FALL [None]
  - IMPAIRED HEALING [None]
  - INFLUENZA LIKE ILLNESS [None]
  - UPPER LIMB FRACTURE [None]
